FAERS Safety Report 9994963 (Version 2)
Quarter: 2014Q3

REPORT INFORMATION
  Report Type: Spontaneous
  Country: US (occurrence: US)
  Receive Date: 20140311
  Receipt Date: 20140902
  Transmission Date: 20150326
  Serious: Yes (Hospitalization)
  Sender: FDA-Public Use
  Company Number: US-BAYER-2014-036212

PATIENT
  Age: 32 Year
  Sex: Female
  Weight: 65.76 kg

DRUGS (8)
  1. TOPAMAX [Concomitant]
     Active Substance: TOPIRAMATE
     Indication: MIGRAINE
     Dosage: 50 MG, UNK
     Dates: start: 2003
  2. PROVIGIL [Concomitant]
     Active Substance: MODAFINIL
     Indication: NARCOLEPSY
     Dosage: 20 MG, UNK
     Dates: start: 2005, end: 2007
  3. CELEBREX [Concomitant]
     Active Substance: CELECOXIB
     Dosage: UNK
  4. YASMIN [Suspect]
     Active Substance: DROSPIRENONE\ETHINYL ESTRADIOL
     Indication: CONTRACEPTION
     Dosage: UNK
     Dates: start: 2005, end: 2006
  5. XYREM [Concomitant]
     Active Substance: SODIUM OXYBATE
     Dosage: 9 ML, UNK
  6. FLEXERIL [Concomitant]
     Active Substance: CYCLOBENZAPRINE HYDROCHLORIDE
  7. TORADOL [Concomitant]
     Active Substance: KETOROLAC TROMETHAMINE
  8. DEXEDRINE [Concomitant]
     Active Substance: DEXTROAMPHETAMINE SULFATE
     Indication: NARCOLEPSY
     Dosage: 40 MG, UNK
     Dates: start: 2003

REACTIONS (10)
  - Heart injury [None]
  - Pain in extremity [None]
  - Pain [None]
  - Pulmonary embolism [Recovered/Resolved]
  - Emotional distress [None]
  - Injury [Recovered/Resolved]
  - Abdominal pain [None]
  - General physical health deterioration [Recovered/Resolved]
  - Chest pain [Recovered/Resolved]
  - Anxiety [None]

NARRATIVE: CASE EVENT DATE: 200602
